FAERS Safety Report 7901139-6 (Version None)
Quarter: 2011Q4

REPORT INFORMATION
  Report Type: 
  Country: None (occurrence: None)
  Receive Date: 20111108
  Receipt Date: 20111107
  Transmission Date: 20120403
  Serious: Yes (Other)
  Sender: FDA-Public Use
  Company Number: RU-PFIZER INC-2011236016

PATIENT
  Sex: Female

DRUGS (4)
  1. XALATAN [Suspect]
     Indication: OPEN ANGLE GLAUCOMA
     Dosage: 1 GTT INTO BOTH EYES, 1X/DAY, IN THE EVENING
     Route: 047
  2. XALATAN [Suspect]
     Indication: OCULAR HYPERTENSION
  3. TIMOLOL [Concomitant]
     Indication: OCULAR HYPERTENSION
  4. TIMOLOL [Concomitant]
     Indication: OPEN ANGLE GLAUCOMA
     Dosage: UNK
     Route: 047

REACTIONS (1)
  - HALLUCINATION [None]
